FAERS Safety Report 17015764 (Version 2)
Quarter: 2020Q1

REPORT INFORMATION
  Report Type: Report from Study
  Country: JP (occurrence: JP)
  Receive Date: 20191111
  Receipt Date: 20200219
  Transmission Date: 20200409
  Serious: Yes (Hospitalization, Other)
  Sender: FDA-Public Use
  Company Number: JP-GILEAD-2018-0357192

PATIENT
  Age: 63 Year
  Sex: Male

DRUGS (26)
  1. TENOFOVIR ALAFENAMIDE [Suspect]
     Active Substance: TENOFOVIR ALAFENAMIDE
     Indication: HEPATITIS B
     Dosage: 25 MG, QD
     Route: 048
     Dates: start: 20180215, end: 20180515
  2. FLIVAS [Concomitant]
     Active Substance: NAFTOPIDIL
     Indication: DISEASE COMPLICATION
     Dosage: UNK
     Route: 048
  3. VESICARE [Concomitant]
     Active Substance: SOLIFENACIN SUCCINATE
     Dosage: UNK
     Route: 048
     Dates: start: 20180517, end: 20191209
  4. DIASTASE [Concomitant]
     Active Substance: DIASTASE
     Indication: DISEASE COMPLICATION
     Dosage: UNK
     Route: 048
  5. LATANOPROST. [Concomitant]
     Active Substance: LATANOPROST
     Indication: DISEASE COMPLICATION
     Dosage: UNK
     Route: 047
     Dates: start: 20190613
  6. LANTUS [Concomitant]
     Active Substance: INSULIN GLARGINE
     Dosage: UNK
     Route: 058
     Dates: start: 20180517, end: 20180521
  7. SANCOBA [Concomitant]
     Active Substance: CYANOCOBALAMIN
     Indication: PROPHYLAXIS
     Dosage: UNK
     Route: 047
     Dates: end: 20180515
  8. GENTIAN [GENTIANA LUTEA] [Concomitant]
     Indication: PROPHYLAXIS
     Dosage: UNK
     Route: 048
  9. NEXIUM 24HR [Concomitant]
     Active Substance: ESOMEPRAZOLE MAGNESIUM
     Indication: PROPHYLAXIS
     Dosage: UNK
     Route: 048
     Dates: start: 20180517, end: 20180521
  10. SOFTEAR [Concomitant]
     Active Substance: CYANOCOBALAMIN
     Indication: PROPHYLAXIS
     Dosage: UNK
     Route: 047
     Dates: start: 20180517
  11. ADEFOVIR DIPIVOXIL. [Suspect]
     Active Substance: ADEFOVIR DIPIVOXIL
     Indication: HEPATITIS B
     Dosage: UNK
     Route: 065
     Dates: start: 200612, end: 20170529
  12. JANUVIA [Concomitant]
     Active Substance: SITAGLIPTIN PHOSPHATE
     Indication: DISEASE COMPLICATION
     Dosage: UNK
     Route: 048
  13. OMEPRAL [OMEPRAZOLE] [Concomitant]
     Indication: PROPHYLAXIS
     Dosage: UNK
     Route: 048
     Dates: end: 20180516
  14. OMEPRAL [OMEPRAZOLE] [Concomitant]
     Dosage: UNK
     Route: 048
     Dates: start: 20180522
  15. ALUMIGEL [ALUMINIUM HYDROXIDE] [Concomitant]
     Indication: DISEASE COMPLICATION
     Dosage: UNK
     Route: 048
  16. TENOFOVIR ALAFENAMIDE [Suspect]
     Active Substance: TENOFOVIR ALAFENAMIDE
     Dosage: 25 MG, QD
     Route: 048
     Dates: start: 20180517
  17. LANTUS [Concomitant]
     Active Substance: INSULIN GLARGINE
     Dosage: UNK
     Route: 058
     Dates: start: 20180522
  18. SODIUM BICARBONATE. [Concomitant]
     Active Substance: SODIUM BICARBONATE
     Indication: DISEASE COMPLICATION
     Dosage: UNK
     Route: 048
  19. URSO [Concomitant]
     Active Substance: URSODIOL
     Indication: PROPHYLAXIS
     Dosage: UNK
     Route: 048
  20. ONEALFA [Concomitant]
     Active Substance: ALFACALCIDOL
     Indication: DISEASE COMPLICATION
     Dosage: UNK
     Route: 048
  21. VESICARE [Concomitant]
     Active Substance: SOLIFENACIN SUCCINATE
     Indication: DISEASE COMPLICATION
     Dosage: UNK
     Route: 048
     Dates: end: 20180515
  22. LANTUS [Concomitant]
     Active Substance: INSULIN GLARGINE
     Indication: DISEASE COMPLICATION
     Dosage: UNK
     Route: 058
     Dates: end: 20180515
  23. GLUFAST [Concomitant]
     Active Substance: MITIGLINIDE
     Indication: DISEASE COMPLICATION
     Dosage: UNK
     Route: 048
  24. TAPROS [LEUPRORELIN ACETATE] [Concomitant]
     Indication: DISEASE COMPLICATION
     Dosage: UNK
     Route: 047
     Dates: end: 20190612
  25. BARACLUDE [Concomitant]
     Active Substance: ENTECAVIR
     Indication: HEPATITIS B
     Dosage: UNK
     Route: 048
     Dates: start: 20180215, end: 20180515
  26. BARACLUDE [Concomitant]
     Active Substance: ENTECAVIR
     Dosage: UNK
     Route: 048
     Dates: start: 20180517

REACTIONS (3)
  - Incarcerated inguinal hernia [Recovered/Resolved]
  - Drug ineffective [Unknown]
  - Large intestine polyp [Recovered/Resolved]

NARRATIVE: CASE EVENT DATE: 20180515
